FAERS Safety Report 20844998 (Version 1)
Quarter: 2022Q2

REPORT INFORMATION
  Report Type: Spontaneous
  Country: CN (occurrence: CN)
  Receive Date: 20220518
  Receipt Date: 20220518
  Transmission Date: 20220721
  Serious: Yes (Other)
  Sender: FDA-Public Use
  Company Number: CN-LUPIN PHARMACEUTICALS INC.-2022-07082

PATIENT
  Age: 11 Year
  Sex: Male

DRUGS (4)
  1. LAMIVUDINE [Suspect]
     Active Substance: LAMIVUDINE
     Indication: Chronic hepatitis B
     Dosage: UNK
     Route: 065
  2. TENOFOVIR DISOPROXIL PHOSPHATE [Suspect]
     Active Substance: TENOFOVIR DISOPROXIL PHOSPHATE
     Indication: Chronic hepatitis B
     Dosage: UNK
     Route: 065
     Dates: start: 201807
  3. ADEFOVIR [Concomitant]
     Active Substance: ADEFOVIR
     Indication: Chronic hepatitis B
     Dosage: UNK
     Route: 065
  4. ENTECAVIR [Concomitant]
     Active Substance: ENTECAVIR
     Indication: Chronic hepatitis B
     Dosage: UNK
     Route: 065
     Dates: start: 2017

REACTIONS (3)
  - Drug resistance [Unknown]
  - Osteopenia [Recovering/Resolving]
  - Off label use [Unknown]
